FAERS Safety Report 16827184 (Version 1)
Quarter: 2019Q3

REPORT INFORMATION
  Report Type: Report from Study
  Country: None (occurrence: US)
  Receive Date: 20190919
  Receipt Date: 20190919
  Transmission Date: 20191005
  Serious: Yes (Hospitalization, Other)
  Sender: FDA-Public Use
  Company Number: US-ABBVIE-19K-163-2924208-00

PATIENT
  Sex: Male

DRUGS (2)
  1. HUMIRA [Suspect]
     Active Substance: ADALIMUMAB
     Route: 058
     Dates: start: 2019
  2. HUMIRA [Suspect]
     Active Substance: ADALIMUMAB
     Indication: COLITIS ULCERATIVE
     Dosage: LOADING DOE
     Route: 058
     Dates: start: 201908, end: 201908

REACTIONS (4)
  - Device issue [Unknown]
  - Blood pressure abnormal [Unknown]
  - Colitis ulcerative [Unknown]
  - Hospitalisation [Unknown]

NARRATIVE: CASE EVENT DATE: 2019
